FAERS Safety Report 21875958 (Version 2)
Quarter: 2023Q1

REPORT INFORMATION
  Report Type: Spontaneous
  Country: FR (occurrence: FR)
  Receive Date: 20230118
  Receipt Date: 20230302
  Transmission Date: 20230417
  Serious: Yes (Death, Life-Threatening, Hospitalization)
  Sender: FDA-Public Use
  Company Number: None

PATIENT
  Age: 56 Year
  Sex: Female
  Weight: 71 kg

DRUGS (6)
  1. DIAZEPAM [Suspect]
     Active Substance: DIAZEPAM
     Indication: Psychotic disorder
     Dosage: LONG COURSE
     Route: 065
  2. OXCARBAZEPINE [Suspect]
     Active Substance: OXCARBAZEPINE
     Indication: Psychotic disorder
     Dosage: LONG COURSE
  3. QUETIAPINE [Suspect]
     Active Substance: QUETIAPINE
     Indication: Psychotic disorder
     Dosage: LONG COURSE
  4. ZOPICLONE [Suspect]
     Active Substance: ZOPICLONE
     Indication: Psychotic disorder
     Dosage: LONG COURSE
  5. LOXAPINE [Suspect]
     Active Substance: LOXAPINE
     Indication: Psychotic disorder
     Dosage: LONG COURSE
  6. TERALITHE [Suspect]
     Active Substance: LITHIUM CARBONATE
     Indication: Psychotic disorder
     Dosage: LONG COURSE

REACTIONS (3)
  - Hypoxic-ischaemic encephalopathy [Fatal]
  - Cardio-respiratory arrest [Recovered/Resolved with Sequelae]
  - Choking [Recovered/Resolved with Sequelae]

NARRATIVE: CASE EVENT DATE: 20221129
